FAERS Safety Report 13682835 (Version 2)
Quarter: 2017Q3

REPORT INFORMATION
  Report Type: Report from Study
  Country: GR (occurrence: GR)
  Receive Date: 20170623
  Receipt Date: 20170705
  Transmission Date: 20171127
  Serious: Yes (Death)
  Sender: FDA-Public Use
  Company Number: GR-PFIZER INC-2017265848

PATIENT
  Age: 8 Year
  Sex: Male

DRUGS (8)
  1. TIGECYCLINE. [Suspect]
     Active Substance: TIGECYCLINE
     Indication: LOWER RESPIRATORY TRACT INFECTION
     Dosage: 1.25 MG/KG, 2X/DAY (MAINTENANCE DOSE)  50 MG, BID
     Route: 042
  2. GENTAMICIN. [Concomitant]
     Active Substance: GENTAMICIN
     Indication: BACTERIAL SEPSIS
     Dosage: UNK
  3. AMPHOTERICIN B, LIPOSOME [Concomitant]
     Active Substance: AMPHOTERICIN B
     Indication: BACTERIAL SEPSIS
     Dosage: UNK
  4. COLISTIN [Concomitant]
     Active Substance: COLISTIN
     Indication: LOWER RESPIRATORY TRACT INFECTION
  5. AMPHOTERICIN B, LIPOSOME [Concomitant]
     Active Substance: AMPHOTERICIN B
     Indication: LOWER RESPIRATORY TRACT INFECTION
  6. GENTAMICIN. [Concomitant]
     Active Substance: GENTAMICIN
     Indication: LOWER RESPIRATORY TRACT INFECTION
  7. TIGECYCLINE. [Suspect]
     Active Substance: TIGECYCLINE
     Indication: BACTERIAL SEPSIS
     Dosage: 2.5 MG/KG, SINGLE (LOADING DOSE)
     Route: 042
  8. COLISTIN [Concomitant]
     Active Substance: COLISTIN
     Indication: BACTERIAL SEPSIS
     Dosage: UNK

REACTIONS (1)
  - Treatment failure [Fatal]
